FAERS Safety Report 9123877 (Version 1)
Quarter: 2013Q1

REPORT INFORMATION
  Report Type: Spontaneous
  Country: US (occurrence: US)
  Receive Date: 20130116
  Receipt Date: 20130116
  Transmission Date: 20140127
  Serious: No
  Sender: FDA-Public Use
  Company Number: US-BAUSCH-BL-2012-002129

PATIENT
  Age: 70 Year
  Sex: Male

DRUGS (1)
  1. LATANOPROST OPHTHALMIC SOLUTION 0.005% [Suspect]
     Indication: GLAUCOMA
     Dosage: 1 DROP IN LEFT EYE, AT BEDTIME
     Route: 047
     Dates: start: 2011

REACTIONS (1)
  - Hepatic enzyme increased [Not Recovered/Not Resolved]
